FAERS Safety Report 6440537-7 (Version None)
Quarter: 2009Q4

REPORT INFORMATION
  Report Type: 
  Country: None (occurrence: None)
  Receive Date: 20091113
  Receipt Date: 20091103
  Transmission Date: 20100525
  Serious: Yes (Disabling, Other)
  Sender: FDA-Public Use
  Company Number: US-ELI_LILLY_AND_COMPANY-US200910004390

PATIENT
  Sex: Male

DRUGS (9)
  1. CIALIS [Suspect]
     Dosage: 20 MG, UNKNOWN
     Route: 065
     Dates: start: 20040101, end: 20090101
  2. CIALIS [Suspect]
     Dosage: 10 MG, UNKNOWN
     Route: 065
  3. CIALIS [Suspect]
     Dosage: 20 MG, UNKNOWN
     Route: 065
     Dates: end: 20090514
  4. SIMVASTATIN [Concomitant]
     Dosage: 40 MG, UNKNOWN
     Route: 065
  5. ARICEPT [Concomitant]
     Dosage: 10 MG, UNKNOWN
     Route: 065
  6. SYNTHROID [Concomitant]
     Dosage: 25 MG, UNKNOWN
     Route: 065
  7. IRON SULFATETHIAMIN COMPOUND TAB [Concomitant]
     Dosage: UNK, UNKNOWN
     Route: 065
  8. ROPINIROLE HYDROCHLORIDE [Concomitant]
     Dosage: UNK, UNKNOWN
     Route: 065
  9. VITAMINS [Concomitant]
     Dosage: UNK, UNKNOWN
     Route: 065

REACTIONS (6)
  - BACK PAIN [None]
  - BALANCE DISORDER [None]
  - CEREBROVASCULAR ACCIDENT [None]
  - FATIGUE [None]
  - GAIT DISTURBANCE [None]
  - MEMORY IMPAIRMENT [None]
